FAERS Safety Report 13002882 (Version 1)
Quarter: 2016Q4

REPORT INFORMATION
  Report Type: Spontaneous
  Country: US (occurrence: US)
  Receive Date: 20161206
  Receipt Date: 20161206
  Transmission Date: 20170207
  Serious: Yes (Hospitalization)
  Sender: FDA-Public Use
  Company Number: None

PATIENT
  Age: 54 Year
  Sex: Female
  Weight: 68 kg

DRUGS (2)
  1. KCENTRA [Suspect]
     Active Substance: COAGULATION FACTOR IX HUMAN\COAGULATION FACTOR VII HUMAN\COAGULATION FACTOR X HUMAN\PROTEIN C\PROTEIN S HUMAN\PROTHROMBIN
  2. VITAMIN K [Concomitant]
     Active Substance: PHYTONADIONE

REACTIONS (9)
  - International normalised ratio increased [None]
  - Anxiety [None]
  - Disorientation [None]
  - Headache [None]
  - Swelling [None]
  - Mydriasis [None]
  - Tardive dyskinesia [None]
  - Hallucination, visual [None]
  - Emotional distress [None]

NARRATIVE: CASE EVENT DATE: 20161205
